FAERS Safety Report 24553904 (Version 1)
Quarter: 2024Q4

REPORT INFORMATION
  Report Type: Report from Study
  Country: US (occurrence: US)
  Receive Date: 20241028
  Receipt Date: 20241028
  Transmission Date: 20250114
  Serious: No
  Sender: ROCHE
  Company Number: US-ROCHE-10000052025

PATIENT
  Age: 82 Year
  Sex: Female

DRUGS (3)
  1. NUTROPIN AQ [Suspect]
     Active Substance: SOMATROPIN
     Indication: Hypothalamo-pituitary disorder
     Dosage: 10 MG AUTO PEN
     Route: 065
     Dates: end: 20250709
  2. NUTROPIN AQ [Suspect]
     Active Substance: SOMATROPIN
     Indication: Hypothalamo-pituitary disorder
  3. NUTROPIN AQ [Suspect]
     Active Substance: SOMATROPIN
     Indication: Hypothalamo-pituitary disorder
     Route: 058

REACTIONS (2)
  - Malaise [Unknown]
  - Off label use [Unknown]
